FAERS Safety Report 13813137 (Version 1)
Quarter: 2017Q3

REPORT INFORMATION
  Report Type: Spontaneous
  Country: JP (occurrence: JP)
  Receive Date: 20170731
  Receipt Date: 20170731
  Transmission Date: 20171127
  Serious: Yes (Other)
  Sender: FDA-Public Use
  Company Number: JP-ORION CORPORATION ORION PHARMA-ENT 2017-0124

PATIENT
  Age: 78 Year
  Sex: Male

DRUGS (2)
  1. COMTAN [Suspect]
     Active Substance: ENTACAPONE
     Route: 048
  2. LEVODOPA [Concomitant]
     Active Substance: LEVODOPA
     Route: 065

REACTIONS (1)
  - Acute kidney injury [Unknown]
